FAERS Safety Report 7883587-6 (Version None)
Quarter: 2011Q4

REPORT INFORMATION
  Report Type: 
  Country: None (occurrence: None)
  Receive Date: 20111102
  Receipt Date: 20100806
  Transmission Date: 20120403
  Serious: No
  Sender: FDA-Public Use
  Company Number: US-BAYER-201030195NA

PATIENT
  Age: 54 Year
  Sex: Female

DRUGS (2)
  1. MUCINEX [Concomitant]
  2. AVELOX [Suspect]
     Indication: SINUSITIS
     Dosage: 400 MG, UNK
     Route: 048
     Dates: start: 20100805

REACTIONS (2)
  - TENDONITIS [None]
  - DERMATITIS ALLERGIC [None]
